FAERS Safety Report 6438794-6 (Version None)
Quarter: 2009Q4

REPORT INFORMATION
  Report Type: 
  Country: None (occurrence: None)
  Receive Date: 20091113
  Receipt Date: 20091111
  Transmission Date: 20100525
  Serious: Yes (Hospitalization)
  Sender: FDA-Public Use
  Company Number: FR-JNJFOC-20091101699

PATIENT
  Age: 58 Year
  Sex: Male

DRUGS (3)
  1. TAVANIC [Suspect]
     Indication: SKIN ULCER
     Route: 048
     Dates: start: 20090821, end: 20090904
  2. CLAMOXYL [Suspect]
     Route: 048
     Dates: start: 20090801
  3. CLAMOXYL [Suspect]
     Indication: SKIN ULCER
     Route: 048
     Dates: start: 20090801

REACTIONS (2)
  - NEPHROPATHY [None]
  - RENAL FAILURE ACUTE [None]
